FAERS Safety Report 6167560-4 (Version None)
Quarter: 2009Q2

REPORT INFORMATION
  Report Type: 
  Country: None (occurrence: None)
  Receive Date: 20090424
  Receipt Date: 20090326
  Transmission Date: 20091009
  Serious: No
  Sender: FDA-Public Use
  Company Number: US-BAYER-200910991BCC

PATIENT
  Sex: Female

DRUGS (1)
  1. ALEVE [Suspect]
     Indication: HEADACHE
     Dosage: TOTAL DAILY DOSE: 1540 MG  UNIT DOSE: 220 MG
     Route: 048
     Dates: start: 20090326

REACTIONS (1)
  - ABDOMINAL PAIN UPPER [None]
